FAERS Safety Report 9284139 (Version 2)
Quarter: 2013Q2

REPORT INFORMATION
  Report Type: Report from Study
  Country: FR (occurrence: FR)
  Receive Date: 20130510
  Receipt Date: 20130521
  Transmission Date: 20140414
  Serious: Yes (Hospitalization)
  Sender: FDA-Public Use
  Company Number: FR-ROCHE-1220093

PATIENT
  Age: 64 Year
  Sex: 0

DRUGS (4)
  1. RITUXIMAB [Suspect]
     Indication: MALIGNANT LYMPHOID NEOPLASM
     Route: 042
  2. BENDAMUSTINE [Suspect]
     Indication: MALIGNANT LYMPHOID NEOPLASM
     Route: 065
  3. BORTEZOMIB [Suspect]
     Indication: MALIGNANT LYMPHOID NEOPLASM
     Route: 065
  4. DEXAMETHASONE [Suspect]
     Indication: MALIGNANT LYMPHOID NEOPLASM
     Route: 065

REACTIONS (3)
  - Ear infection [Recovered/Resolved]
  - Rhinitis [Recovered/Resolved]
  - Pharyngitis [Recovered/Resolved]
